FAERS Safety Report 7319548-5 (Version None)
Quarter: 2011Q1

REPORT INFORMATION
  Report Type: 
  Country: None (occurrence: None)
  Receive Date: 20110228
  Receipt Date: 20101108
  Transmission Date: 20110831
  Serious: No
  Sender: FDA-Public Use
  Company Number: A0859891B

PATIENT
  Sex: Male
  Weight: 3.6 kg

DRUGS (3)
  1. LAMICTAL [Suspect]
     Dosage: 150MG TWICE PER DAY
     Route: 064
     Dates: start: 20070101
  2. SERTRALINE HYDROCHLORIDE [Suspect]
     Indication: DEPRESSION
     Dosage: 100MG PER DAY
     Route: 064
     Dates: start: 20080101
  3. PRENATAL VITAMINS [Concomitant]
     Indication: PREGNANCY
     Dosage: 1TAB PER DAY
     Route: 064
     Dates: start: 20091201

REACTIONS (3)
  - FEELING JITTERY [None]
  - DRUG EXPOSURE DURING PREGNANCY [None]
  - RESPIRATORY DISORDER [None]
